FAERS Safety Report 5138331-2 (Version None)
Quarter: 2006Q4

REPORT INFORMATION
  Report Type: 
  Country: None (occurrence: None)
  Receive Date: 20061030
  Receipt Date: 20060824
  Transmission Date: 20070319
  Serious: No
  Sender: FDA-Public Use
  Company Number: US-GLAXOSMITHKLINE-A0618008A

PATIENT
  Age: 60 Year
  Sex: Female

DRUGS (1)
  1. ADVAIR HFA [Suspect]
     Indication: ASTHMA
     Route: 055
     Dates: start: 20050501

REACTIONS (3)
  - DIZZINESS [None]
  - DYSPNOEA [None]
  - INCORRECT DOSE ADMINISTERED [None]
